FAERS Safety Report 15796610 (Version 2)
Quarter: 2019Q1

REPORT INFORMATION
  Report Type: Report from Study
  Country: None (occurrence: US)
  Receive Date: 20190108
  Receipt Date: 20190111
  Transmission Date: 20190417
  Serious: Yes (Hospitalization)
  Sender: FDA-Public Use
  Company Number: US-ABBVIE-19S-163-2613172-00

PATIENT
  Age: 64 Year
  Sex: Female
  Weight: 49.94 kg

DRUGS (6)
  1. CREON [Suspect]
     Active Substance: PANCRELIPASE AMYLASE\PANCRELIPASE LIPASE\PANCRELIPASE PROTEASE
     Indication: PANCREATIC FAILURE
     Dosage: 4 CAPSULES WITH EACH MEAL AND 3 WITH EACH SNACK. 21 PER DAY.
     Route: 048
     Dates: start: 2013
  2. NOVOLOG [Concomitant]
     Active Substance: INSULIN ASPART
     Indication: DIABETES MELLITUS
  3. SYNTHROID [Concomitant]
     Active Substance: LEVOTHYROXINE SODIUM
     Indication: HYPOTHYROIDISM
  4. LIPITOR [Concomitant]
     Active Substance: ATORVASTATIN CALCIUM
     Indication: BLOOD CHOLESTEROL INCREASED
  5. LANTUS [Concomitant]
     Active Substance: INSULIN GLARGINE
     Indication: DIABETES MELLITUS
  6. MUMULIN INSULIN [Concomitant]
     Indication: PRODUCT USED FOR UNKNOWN INDICATION
     Dosage: (R+N)

REACTIONS (4)
  - Exostosis [Recovered/Resolved with Sequelae]
  - Erythema [Recovering/Resolving]
  - Ligament rupture [Recovered/Resolved]
  - Meniscus injury [Recovered/Resolved]

NARRATIVE: CASE EVENT DATE: 201711
